FAERS Safety Report 17011332 (Version 1)
Quarter: 2019Q4

REPORT INFORMATION
  Report Type: Spontaneous
  Country: US (occurrence: US)
  Receive Date: 20191108
  Receipt Date: 20191108
  Transmission Date: 20200122
  Serious: No
  Sender: FDA-Public Use
  Company Number: US-NOVOPROD-665568

PATIENT
  Age: 71 Year
  Sex: Male

DRUGS (1)
  1. TRESIBA [Suspect]
     Active Substance: INSULIN DEGLUDEC
     Indication: PRODUCT USED FOR UNKNOWN INDICATION
     Dosage: 10 UNITS (10 IU)
     Route: 058
     Dates: start: 20190513

REACTIONS (1)
  - Peripheral coldness [Recovered/Resolved]

NARRATIVE: CASE EVENT DATE: 20190524
